FAERS Safety Report 4979278-1 (Version None)
Quarter: 2006Q2

REPORT INFORMATION
  Report Type: 
  Country: None (occurrence: None)
  Receive Date: 20060421
  Receipt Date: 20050418
  Transmission Date: 20061013
  Serious: Yes (Death)
  Sender: FDA-Public Use
  Company Number: US-MERCK-0504USA03485

PATIENT
  Age: 65 Year
  Sex: Male
  Weight: 80 kg

DRUGS (1)
  1. VIOXX [Suspect]
     Indication: ARTHRITIS
     Route: 048
     Dates: start: 20030101, end: 20040221

REACTIONS (2)
  - CARDIAC FAILURE [None]
  - MYOCARDIAL INFARCTION [None]
